FAERS Safety Report 4771571-0 (Version None)
Quarter: 2005Q3

REPORT INFORMATION
  Report Type: 
  Country: None (occurrence: None)
  Receive Date: 20050916
  Receipt Date: 20050701
  Transmission Date: 20060218
  Serious: Yes (Other)
  Sender: FDA-Public Use
  Company Number: 2005UW09942

PATIENT
  Age: 67 Year
  Sex: Female
  Weight: 77.1 kg

DRUGS (4)
  1. NEXIUM [Suspect]
     Indication: GASTROOESOPHAGEAL REFLUX DISEASE
     Route: 048
     Dates: start: 20030101
  2. NEXIUM [Suspect]
     Route: 048
  3. ASPIRIN [Concomitant]
  4. PROPRANOLOL [Concomitant]

REACTIONS (1)
  - SKIN CANCER [None]
